FAERS Safety Report 5147092-2 (Version None)
Quarter: 2006Q4

REPORT INFORMATION
  Report Type: 
  Country: None (occurrence: None)
  Receive Date: 20061102
  Receipt Date: 20061025
  Transmission Date: 20070319
  Serious: Yes (Hospitalization)
  Sender: FDA-Public Use
  Company Number: 2006-05572

PATIENT
  Age: 67 Year
  Sex: Female

DRUGS (4)
  1. DEXAMETHASONE [Suspect]
     Indication: CHEMOTHERAPY
     Dosage: SEE IMAGE
     Route: 042
     Dates: start: 20060501
  2. DEXAMETHASONE [Suspect]
     Indication: PREMEDICATION
     Dosage: SEE IMAGE
     Route: 042
     Dates: start: 20060501
  3. NEULASTA [Suspect]
     Indication: INFECTION PROPHYLAXIS
     Dosage: X3 UNK
     Dates: start: 20060501
  4. PACITAXEL (PACITAXEL) [Suspect]
     Indication: BREAST CANCER
     Dosage: X4, UNK
     Dates: start: 20060501

REACTIONS (2)
  - DYSPNOEA [None]
  - LEUKOCYTOSIS [None]
